FAERS Safety Report 5009158-7 (Version None)
Quarter: 2006Q2

REPORT INFORMATION
  Report Type: 
  Country: None (occurrence: None)
  Receive Date: 20060519
  Receipt Date: 20060509
  Transmission Date: 20061013
  Serious: Yes (Death)
  Sender: FDA-Public Use
  Company Number: S06-USA-01839-01

PATIENT
  Age: 77 Year
  Sex: Female

DRUGS (1)
  1. NAMENDA [Suspect]
     Dates: end: 20051025

REACTIONS (1)
  - DRUG LEVEL INCREASED [None]
